FAERS Safety Report 9987917 (Version 1)
Quarter: 2014Q1

REPORT INFORMATION
  Report Type: Spontaneous
  Country: US (occurrence: US)
  Receive Date: 20140307
  Receipt Date: 20140307
  Transmission Date: 20141002
  Serious: No
  Sender: FDA-Public Use
  Company Number: US-009507513-1402USA012242

PATIENT
  Age: 60 Year
  Sex: Male

DRUGS (2)
  1. PEGINTRON [Suspect]
     Indication: HEPATITIS C
     Dosage: 120 MICROGRAM, ONCE WEEKLY
     Route: 058
     Dates: start: 20131030
  2. REBETOL [Suspect]
     Route: 048

REACTIONS (4)
  - Abdominal pain upper [Recovering/Resolving]
  - Headache [Recovering/Resolving]
  - Accidental exposure to product [Unknown]
  - Product quality issue [Unknown]
